FAERS Safety Report 4484873-2 (Version None)
Quarter: 2004Q3

REPORT INFORMATION
  Report Type: 
  Country: None (occurrence: None)
  Receive Date: 20040921
  Receipt Date: 20030908
  Transmission Date: 20050211
  Serious: Yes (Hospitalization)
  Sender: FDA-Public Use
  Company Number: 163-20785-03090281

PATIENT
  Age: 57 Year
  Sex: Male
  Weight: 80.7403 kg

DRUGS (11)
  1. THALOMID [Suspect]
     Indication: MULTIPLE MYELOMA
     Dosage: 200 MG, DAILY, ORAL; 300 MG, DAILY, ORAL
     Route: 048
     Dates: start: 20030326, end: 20030505
  2. THALOMID [Suspect]
     Indication: MULTIPLE MYELOMA
     Dosage: 200 MG, DAILY, ORAL; 300 MG, DAILY, ORAL
     Route: 048
     Dates: start: 20030506, end: 20030603
  3. DEXAMETHASONE [Suspect]
     Indication: MULTIPLE MYELOMA
     Dosage: 48 MG, MONTHLY DAYS 1-4, 9-12, 17-22; 24 MG, MONTHLY DAYS 1-4, 9-12, 17-22
     Dates: start: 20030326, end: 20030505
  4. DEXAMETHASONE [Suspect]
     Indication: MULTIPLE MYELOMA
     Dosage: 48 MG, MONTHLY DAYS 1-4, 9-12, 17-22; 24 MG, MONTHLY DAYS 1-4, 9-12, 17-22
     Dates: start: 20030506, end: 20030603
  5. HYDROCODONE (HYDROCODONE) [Concomitant]
  6. AVALIDE (KARVEA HCT) [Concomitant]
  7. PAXIL [Concomitant]
  8. SENNA-C (SENNA) [Concomitant]
  9. MULTIVITAMIN [Concomitant]
  10. GLUCOTROL XL [Concomitant]
  11. PREVACID [Concomitant]

REACTIONS (10)
  - ASTHENIA [None]
  - BACK PAIN [None]
  - BLOOD UREA INCREASED [None]
  - CHEST DISCOMFORT [None]
  - DIABETES MELLITUS [None]
  - DYSPNOEA [None]
  - POLYDIPSIA [None]
  - POLYURIA [None]
  - PULMONARY EMBOLISM [None]
  - VISION BLURRED [None]
